FAERS Safety Report 5974398-7 (Version None)
Quarter: 2008Q4

REPORT INFORMATION
  Report Type: 
  Country: None (occurrence: None)
  Receive Date: 20081201
  Receipt Date: 20081120
  Transmission Date: 20090506
  Serious: Yes (Hospitalization)
  Sender: FDA-Public Use
  Company Number: PL-PFIZER INC-2008094394

PATIENT
  Sex: Male
  Weight: 67 kg

DRUGS (5)
  1. SILDENAFIL CITRATE [Suspect]
     Indication: PULMONARY ARTERIAL HYPERTENSION
     Route: 048
     Dates: start: 20050216
  2. ENALAPRIL MALEATE [Concomitant]
     Route: 048
     Dates: start: 19950109
  3. DIGOXIN [Concomitant]
     Route: 048
     Dates: start: 19950109
  4. FUROSEMID [Concomitant]
     Route: 048
     Dates: start: 20081021
  5. ASPIRIN [Concomitant]

REACTIONS (1)
  - CARDIAC FAILURE CONGESTIVE [None]
